FAERS Safety Report 12076490 (Version 1)
Quarter: 2016Q1

REPORT INFORMATION
  Report Type: Spontaneous
  Country: US (occurrence: US)
  Receive Date: 20160215
  Receipt Date: 20160215
  Transmission Date: 20160526
  Serious: Yes (Other)
  Sender: FDA-Public Use
  Company Number: US-CIPLA LTD.-2016US01079

PATIENT

DRUGS (4)
  1. AFATINIB [Suspect]
     Active Substance: AFATINIB
     Indication: SQUAMOUS CELL CARCINOMA OF HEAD AND NECK
     Dosage: 30 MG DOSE LEVEL AS A CONTINUOUS DAILY DOSING, CYCLE WAS REPEATED EVERY 21 DAYS
     Route: 048
  2. PACLITAXEL. [Suspect]
     Active Substance: PACLITAXEL
     Indication: SQUAMOUS CELL CARCINOMA OF HEAD AND NECK
     Dosage: 175 MG/M2 ON DAY 1, CYCLE WAS REPEATED EVERY 21 DAYS
     Route: 042
  3. CARBOPLATIN. [Suspect]
     Active Substance: CARBOPLATIN
     Indication: SQUAMOUS CELL CARCINOMA OF HEAD AND NECK
     Dosage: AUC 6 MG/ML MIN ON DAY 1, CYCLE WAS REPEATED EVERY 21 DAYS
     Route: 042
  4. CISPLATIN. [Concomitant]
     Active Substance: CISPLATIN
     Indication: PREMEDICATION
     Dosage: 40 MG/M2 WEEKLY
     Route: 042

REACTIONS (1)
  - Toxicity to various agents [Unknown]
